FAERS Safety Report 8049532-8 (Version None)
Quarter: 2012Q1

REPORT INFORMATION
  Report Type: 
  Country: None (occurrence: None)
  Receive Date: 20120117
  Receipt Date: 20120110
  Transmission Date: 20120608
  Serious: Yes (Hospitalization)
  Sender: FDA-Public Use
  Company Number: NO-ROCHE-1027944

PATIENT
  Age: 54 Year
  Sex: Male
  Weight: 85.4 kg

DRUGS (2)
  1. VEMURAFENIB [Suspect]
     Indication: METASTATIC MALIGNANT MELANOMA
     Dosage: LAST DOSE PRIOR TO SAE 02 JAN 2012
     Route: 048
     Dates: start: 20110919
  2. ASPIRIN [Concomitant]
     Dates: start: 20111219

REACTIONS (1)
  - EPILEPSY [None]
